FAERS Safety Report 6530149-9 (Version None)
Quarter: 2010Q1

REPORT INFORMATION
  Report Type: 
  Country: None (occurrence: None)
  Receive Date: 20100107
  Receipt Date: 20091229
  Transmission Date: 20100710
  Serious: Yes (Other)
  Sender: FDA-Public Use
  Company Number: DE-AMGEN-US372943

PATIENT
  Sex: Female
  Weight: 58 kg

DRUGS (5)
  1. ENBREL [Suspect]
     Indication: RHEUMATOID ARTHRITIS
     Route: 058
     Dates: start: 20061101, end: 20091001
  2. CALCIMAGON [Concomitant]
     Route: 048
  3. OMEPRAZOLE [Concomitant]
     Route: 048
  4. ARAVA [Concomitant]
     Indication: RHEUMATOID ARTHRITIS
     Route: 048
  5. ARCOXIA [Concomitant]
     Route: 048

REACTIONS (3)
  - BLOOD AMYLASE INCREASED [None]
  - EPIGASTRIC DISCOMFORT [None]
  - LIPASE INCREASED [None]
